FAERS Safety Report 25654918 (Version 3)
Quarter: 2025Q3

REPORT INFORMATION
  Report Type: Report from Study
  Country: EU (occurrence: EU)
  Receive Date: 20250807
  Receipt Date: 20250902
  Transmission Date: 20251020
  Serious: Yes (Other)
  Sender: TORRENT PHARMA INC.
  Company Number: None

PATIENT
  Age: 36 Year
  Sex: Female

DRUGS (15)
  1. FENTANYL [Suspect]
     Active Substance: FENTANYL
     Indication: Product used for unknown indication
     Route: 065
  2. MORPHINE [Suspect]
     Active Substance: MORPHINE
     Indication: Product used for unknown indication
     Route: 065
  3. PREGABALIN [Suspect]
     Active Substance: PREGABALIN
     Indication: Product used for unknown indication
     Route: 065
  4. BUPRENORPHINE [Suspect]
     Active Substance: BUPRENORPHINE
     Indication: Product used for unknown indication
     Route: 065
  5. CODEINE [Suspect]
     Active Substance: CODEINE
     Indication: Product used for unknown indication
     Route: 065
  6. CLONAZEPAM [Suspect]
     Active Substance: CLONAZEPAM
     Indication: Product used for unknown indication
     Route: 065
  7. ALCOHOL [Suspect]
     Active Substance: ALCOHOL
     Indication: Product used for unknown indication
     Route: 048
  8. TENAMFETAMINE [Suspect]
     Active Substance: TENAMFETAMINE
     Indication: Product used for unknown indication
     Route: 065
  9. MIDOMAFETAMINE [Suspect]
     Active Substance: MIDOMAFETAMINE
     Indication: Product used for unknown indication
     Route: 065
  10. METHYLENEDIOXYPYRROLIDINOHEXIOPHENONE [Suspect]
     Active Substance: METHYLENEDIOXYPYRROLIDINOHEXIOPHENONE
     Indication: Product used for unknown indication
     Route: 065
  11. NORFENTANYL [Suspect]
     Active Substance: NORFENTANYL
     Indication: Product used for unknown indication
     Route: 065
  12. HERBALS\TETRAHYDROCANNABINOL UNSPECIFIED [Suspect]
     Active Substance: HERBALS\TETRAHYDROCANNABINOL UNSPECIFIED
     Indication: Product used for unknown indication
     Route: 065
  13. TENAMFETAMINE [Suspect]
     Active Substance: TENAMFETAMINE
     Indication: Product used for unknown indication
     Route: 065
  14. ZOPICLONE [Suspect]
     Active Substance: ZOPICLONE
     Indication: Product used for unknown indication
     Route: 065
  15. ALPHA-PHP [Suspect]
     Active Substance: ALPHA-PHP
     Indication: Product used for unknown indication
     Route: 065

REACTIONS (6)
  - Aggression [Unknown]
  - Substance abuse [Unknown]
  - Withdrawal syndrome [Unknown]
  - Disorientation [Unknown]
  - Intentional product misuse [Unknown]
  - Behaviour disorder [Unknown]
